FAERS Safety Report 15430283 (Version 1)
Quarter: 2018Q4

REPORT INFORMATION
  Report Type: Spontaneous
  Country: US (occurrence: US)
  Receive Date: 20180926
  Receipt Date: 20180926
  Transmission Date: 20190204
  Serious: No
  Sender: FDA-Public Use
  Company Number: US-ASSERTIO THERAPEUTICS, INC.-US-2018DEP000721

PATIENT

DRUGS (2)
  1. GRALISE [Suspect]
     Active Substance: GABAPENTIN
     Indication: NERVE INJURY
     Dosage: 600 MG, QD
     Route: 048
     Dates: start: 2015
  2. VITAMIN D                          /00107901/ [Concomitant]
     Active Substance: ERGOCALCIFEROL
     Indication: PRODUCT USED FOR UNKNOWN INDICATION
     Dosage: UNK, PRN

REACTIONS (6)
  - Abdominal distension [Not Recovered/Not Resolved]
  - Throat irritation [Not Recovered/Not Resolved]
  - Stomach mass [Not Recovered/Not Resolved]
  - Product use in unapproved indication [Unknown]
  - Drug titration error [Unknown]
  - Throat tightness [Not Recovered/Not Resolved]

NARRATIVE: CASE EVENT DATE: 2015
